FAERS Safety Report 19050703 (Version 1)
Quarter: 2021Q1

REPORT INFORMATION
  Report Type: Spontaneous
  Country: DE (occurrence: DE)
  Receive Date: 20210323
  Receipt Date: 20210323
  Transmission Date: 20210420
  Serious: Yes (Hospitalization)
  Sender: FDA-Public Use
  Company Number: DE-ASTRAZENECA-2021A164702

PATIENT
  Sex: Female

DRUGS (2)
  1. ATROVENT 500 [Concomitant]
  2. PULMICORT TURBUHALER [Suspect]
     Active Substance: BUDESONIDE
     Dosage: 0.5MG UNKNOWN
     Route: 055

REACTIONS (6)
  - Condition aggravated [Unknown]
  - Chills [Unknown]
  - Blister [Unknown]
  - Nausea [Unknown]
  - Osteoporosis [Unknown]
  - Intentional product misuse [Unknown]
